FAERS Safety Report 5651365-4 (Version None)
Quarter: 2008Q1

REPORT INFORMATION
  Report Type: 
  Country: None (occurrence: None)
  Receive Date: 20080305
  Receipt Date: 20080228
  Transmission Date: 20080703
  Serious: Yes (Other)
  Sender: FDA-Public Use
  Company Number: BR-GILEAD-2007-0014543

PATIENT
  Sex: Female
  Weight: 2.76 kg

DRUGS (5)
  1. VIREAD [Suspect]
     Indication: PROPHYLAXIS AGAINST HIV INFECTION
     Route: 048
     Dates: start: 20071111, end: 20071111
  2. ZIDOVUDINE [Concomitant]
     Indication: PROPHYLAXIS AGAINST HIV INFECTION
     Dosage: 2 MG/KG BID
     Route: 048
     Dates: start: 20071117, end: 20071222
  3. ZIDOVUDINE [Concomitant]
     Dosage: 2 MG/KG QID
     Route: 048
     Dates: start: 20071110, end: 20071116
  4. VITAMIN K [Concomitant]
     Indication: PROPHYLAXIS
     Route: 030
  5. SILVER NITRATE [Concomitant]
     Indication: PROPHYLAXIS
     Route: 061

REACTIONS (2)
  - ANAEMIA [None]
  - BLOOD CREATININE INCREASED [None]
